FAERS Safety Report 6370800-X (Version None)
Quarter: 2009Q3

REPORT INFORMATION
  Report Type: 
  Country: None (occurrence: None)
  Receive Date: 20090923
  Receipt Date: 20070607
  Transmission Date: 20100115
  Serious: Yes (Other)
  Sender: FDA-Public Use
  Company Number: US-ASTRAZENECA-2006UW24513

PATIENT
  Age: 27 Year
  Sex: Female
  Weight: 138.8 kg

DRUGS (12)
  1. SEROQUEL [Suspect]
     Indication: BIPOLAR DISORDER
     Route: 048
     Dates: start: 20030101, end: 20060801
  2. SEROQUEL [Suspect]
     Dosage: 100 - 200 MG
     Route: 048
     Dates: start: 20050926
  3. OLANZAPINE [Concomitant]
     Dates: start: 20040101
  4. PROZAC [Concomitant]
     Dates: start: 20040101
  5. DEPAKOTE [Concomitant]
  6. TYLENOL (CAPLET) [Concomitant]
  7. MOTRIN [Concomitant]
  8. ELAVIL [Concomitant]
  9. LEXAPRO [Concomitant]
  10. TRAZODONE [Concomitant]
  11. COMBIVENT [Concomitant]
  12. DOXEPIN HCL [Concomitant]

REACTIONS (4)
  - DIABETES MELLITUS [None]
  - EPILEPSY [None]
  - OBESITY [None]
  - PANCREATITIS [None]
